FAERS Safety Report 6787760-X (Version None)
Quarter: 2010Q2

REPORT INFORMATION
  Report Type: 
  Country: None (occurrence: None)
  Receive Date: 20100623
  Receipt Date: 20070810
  Transmission Date: 20101027
  Serious: No
  Sender: FDA-Public Use
  Company Number: US-PFIZER INC-2007067356

PATIENT
  Sex: Female
  Weight: 68.2 kg

DRUGS (1)
  1. DEPO-PROVERA SUSPENSION/INJ [Suspect]
     Indication: CONTRACEPTION
     Route: 042
     Dates: start: 19960901

REACTIONS (3)
  - HEADACHE [None]
  - MOOD ALTERED [None]
  - NAUSEA [None]
